FAERS Safety Report 6103237-9 (Version None)
Quarter: 2009Q1

REPORT INFORMATION
  Report Type: 
  Country: None (occurrence: None)
  Receive Date: 20090302
  Receipt Date: 20090220
  Transmission Date: 20090719
  Serious: Yes (Other)
  Sender: FDA-Public Use
  Company Number: 039038

PATIENT
  Age: 35 Year
  Sex: Female

DRUGS (5)
  1. CLARAVIS [Suspect]
     Dosage: 40 MG, QD, IN AM, ORAL;    20 MG, QD, IN PM, ORAL
     Route: 048
     Dates: start: 20080904, end: 20081101
  2. CLARAVIS [Suspect]
     Dosage: 40 MG, QD, IN AM, ORAL;    20 MG, QD, IN PM, ORAL
     Route: 048
     Dates: start: 20080904, end: 20081101
  3. CLARAVIS [Suspect]
     Dosage: 40 MG, QD, IN AM, ORAL;    20 MG, QD, IN PM, ORAL
     Route: 048
     Dates: start: 20081101, end: 20081226
  4. CLARAVIS [Suspect]
     Dosage: 40 MG, QD, IN AM, ORAL;    20 MG, QD, IN PM, ORAL
     Route: 048
     Dates: start: 20081101, end: 20081226
  5. ORAL CONTRACEPTIVE NOS (ORAL CONTRACEPTIVE NOS) [Concomitant]

REACTIONS (12)
  - ABORTION INDUCED [None]
  - DEVICE BREAKAGE [None]
  - DRUG EXPOSURE DURING PREGNANCY [None]
  - INAPPROPRIATE SCHEDULE OF DRUG ADMINISTRATION [None]
  - MALAISE [None]
  - NAUSEA [None]
  - SINUS DISORDER [None]
  - SINUSITIS [None]
  - TREATMENT FAILURE [None]
  - TREATMENT NONCOMPLIANCE [None]
  - UNINTENDED PREGNANCY [None]
  - VOMITING [None]
